FAERS Safety Report 23755663 (Version 1)
Quarter: 2024Q2

REPORT INFORMATION
  Report Type: Spontaneous
  Country: CA (occurrence: CA)
  Receive Date: 20240418
  Receipt Date: 20240418
  Transmission Date: 20240715
  Serious: Yes (Life-Threatening, Hospitalization)
  Sender: FDA-Public Use
  Company Number: None

PATIENT
  Age: 1 Year
  Sex: Male
  Weight: 10 kg

DRUGS (7)
  1. CARBOPLATIN [Suspect]
     Active Substance: CARBOPLATIN
     Indication: Transplant
     Dosage: SOLUTION INTRAVENOUS, 1 EVERY 1 DAYS
     Route: 042
  2. THIOTEPA [Suspect]
     Active Substance: THIOTEPA
     Indication: Transplant
     Dosage: 1 EVERY 1 DAYS
     Route: 042
  3. ACYCLOVIR [Concomitant]
     Active Substance: ACYCLOVIR
  4. AMLODIPINE [Concomitant]
     Active Substance: AMLODIPINE BESYLATE
     Route: 065
  5. FAMOTIDINE [Concomitant]
     Active Substance: FAMOTIDINE
  6. METOCLOPRAMIDE [Concomitant]
     Active Substance: METOCLOPRAMIDE
  7. URSODIOL [Concomitant]
     Active Substance: URSODIOL

REACTIONS (5)
  - Congenital aplasia [Unknown]
  - Febrile neutropenia [Unknown]
  - Mucosal inflammation [Unknown]
  - Pancytopenia [Unknown]
  - Rhinovirus infection [Unknown]
